FAERS Safety Report 24272264 (Version 1)
Quarter: 2024Q3

REPORT INFORMATION
  Report Type: Spontaneous
  Country: US (occurrence: US)
  Receive Date: 20240902
  Receipt Date: 20240902
  Transmission Date: 20241017
  Serious: No
  Sender: JOHNSON AND JOHNSON
  Company Number: US-JNJFOC-20240871747

PATIENT
  Age: 66 Year
  Sex: Male

DRUGS (3)
  1. ERLEADA [Suspect]
     Active Substance: APALUTAMIDE
     Indication: Product used for unknown indication
     Route: 048
  2. RELUGOLIX [Suspect]
     Active Substance: RELUGOLIX
     Indication: Prostate cancer
     Route: 048
  3. RELUGOLIX [Suspect]
     Active Substance: RELUGOLIX
     Route: 048

REACTIONS (4)
  - Insomnia [Unknown]
  - Hyperhidrosis [Unknown]
  - Onychoclasis [Unknown]
  - Blood glucose increased [Unknown]
